FAERS Safety Report 4678450-8 (Version None)
Quarter: 2005Q2

REPORT INFORMATION
  Report Type: 
  Country: None (occurrence: None)
  Receive Date: 20050601
  Receipt Date: 20050523
  Transmission Date: 20051028
  Serious: Yes (Hospitalization)
  Sender: FDA-Public Use
  Company Number: US-AMGEN-US135292

PATIENT
  Sex: Male

DRUGS (4)
  1. ARANESP [Suspect]
     Indication: ANAEMIA OF MALIGNANT DISEASE
     Dates: start: 20050519
  2. LIPITOR [Concomitant]
  3. ANTIHYPERTENSIVE MEDICATION NOS [Concomitant]
  4. NEURONTIN [Concomitant]

REACTIONS (3)
  - HAEMATURIA [None]
  - LEUKOCYTOSIS [None]
  - WHITE BLOOD CELL COUNT INCREASED [None]
